FAERS Safety Report 6496206-0 (Version None)
Quarter: 2009Q4

REPORT INFORMATION
  Report Type: 
  Country: None (occurrence: None)
  Receive Date: 20091214
  Receipt Date: 20091022
  Transmission Date: 20100525
  Serious: No
  Sender: FDA-Public Use
  Company Number: US-BRISTOL-MYERS SQUIBB COMPANY-14827430

PATIENT
  Age: 12 Year
  Sex: Female
  Weight: 42 kg

DRUGS (2)
  1. ABILIFY [Suspect]
     Dosage: INITIALLY TAKEN 10MG TABS TAKEN TILL 24SEP2009, THEN DOSE REDUCED TO 10MG
     Route: 048
     Dates: start: 20090917
  2. DEPAKOTE [Concomitant]

REACTIONS (3)
  - ABNORMAL BEHAVIOUR [None]
  - AGITATION [None]
  - MEDICATION ERROR [None]
